FAERS Safety Report 4723467-8 (Version None)
Quarter: 2005Q3

REPORT INFORMATION
  Report Type: 
  Country: None (occurrence: None)
  Receive Date: 20050725
  Receipt Date: 20050516
  Transmission Date: 20060218
  Serious: Yes (Hospitalization, Disabling)
  Sender: FDA-Public Use
  Company Number: HCM-0076

PATIENT
  Age: 50 Year
  Sex: Male

DRUGS (10)
  1. HYCAMTIN [Suspect]
     Indication: SMALL CELL LUNG CANCER STAGE UNSPECIFIED
     Dosage: 1.65MG PER DAY
     Route: 042
     Dates: start: 20041102, end: 20041203
  2. CARBOPLATIN [Concomitant]
     Route: 065
  3. IRINOTECAN HYDROCHLORIDE [Concomitant]
     Route: 065
  4. METOCLOPRAMIDE [Concomitant]
     Dosage: 300MG PER DAY
     Route: 048
  5. MAGNESIUM OXIDE [Concomitant]
     Dosage: 2.5MG PER DAY
     Route: 048
  6. FAMOTIDINE [Concomitant]
     Dosage: 20MG PER DAY
     Route: 048
  7. CARBOCISTEINE [Concomitant]
     Route: 048
  8. ASTOMIN [Concomitant]
     Dosage: 60MG PER DAY
     Route: 048
  9. CODEINE PHOSPHATE [Concomitant]
     Dosage: 6G PER DAY
     Route: 048
  10. DEXTROMETHORPHAN HYDROBROMIDE [Concomitant]
     Dosage: 1G PER DAY
     Route: 048

REACTIONS (5)
  - ANAEMIA [None]
  - BLOOD LACTATE DEHYDROGENASE INCREASED [None]
  - DIFFERENTIAL WHITE BLOOD CELL COUNT ABNORMAL [None]
  - LEUKOPENIA [None]
  - THROMBOCYTOPENIA [None]
